FAERS Safety Report 7814685-0 (Version None)
Quarter: 2011Q4

REPORT INFORMATION
  Report Type: 
  Country: None (occurrence: None)
  Receive Date: 20111014
  Receipt Date: 20111007
  Transmission Date: 20120403
  Serious: Yes (Hospitalization, Other)
  Sender: FDA-Public Use
  Company Number: FR-PFIZER INC-2011156712

PATIENT
  Age: 62 Year
  Sex: Male
  Weight: 51 kg

DRUGS (9)
  1. LYRICA [Suspect]
     Dosage: 75 MG, 2X/DAY
     Dates: start: 20110101, end: 20110305
  2. TAMSULOSIN [Concomitant]
  3. TRAMADOL [Concomitant]
     Dosage: 100 MG DAILY
  4. ACETAMINOPHEN [Concomitant]
     Dosage: AS NEEDED
  5. PRAVASTATIN [Concomitant]
  6. TRAMADOL HCL [Concomitant]
     Dosage: 100 MG, 2X/DAY
  7. LYRICA [Suspect]
     Indication: NEUROPATHY PERIPHERAL
     Dosage: 150 MG, 2X/DAY
     Route: 048
     Dates: start: 20070828
  8. LYRICA [Suspect]
     Indication: PAIN
     Dosage: 75 MG, 1X/DAY
     Dates: start: 20110101, end: 20110101
  9. TRAMADOL HYDROCHLORIDE AND ACETAMINOPHEN [Concomitant]
     Dosage: 3 DF DAILY

REACTIONS (7)
  - DYSPNOEA [None]
  - PALPITATIONS [None]
  - ASTHENIA [None]
  - CHEST PAIN [None]
  - DECREASED APPETITE [None]
  - NEUTROPENIA [None]
  - ABDOMINAL PAIN UPPER [None]
